FAERS Safety Report 15112755 (Version 2)
Quarter: 2018Q3

REPORT INFORMATION
  Report Type: Report from Study
  Country: US (occurrence: US)
  Receive Date: 20180705
  Receipt Date: 20180710
  Transmission Date: 20181010
  Serious: Yes (Hospitalization)
  Sender: FDA-Public Use
  Company Number: US-GILEAD-2018-0347615

PATIENT
  Age: 63 Year
  Sex: Male
  Weight: 93.3 kg

DRUGS (13)
  1. RIBAVIRIN. [Suspect]
     Active Substance: RIBAVIRIN
     Dosage: 800 MG, QD
     Route: 048
     Dates: start: 20171124, end: 20171207
  2. RIBAVIRIN. [Suspect]
     Active Substance: RIBAVIRIN
     Dosage: 600 MG, QD
     Route: 048
     Dates: start: 20171208, end: 20180116
  3. VITAMINS                           /00067501/ [Concomitant]
     Active Substance: VITAMINS
  4. CARDIZEM [Concomitant]
     Active Substance: DILTIAZEM HYDROCHLORIDE
  5. FISH OIL [Concomitant]
     Active Substance: FISH OIL
  6. NITROGLYCERIN. [Concomitant]
     Active Substance: NITROGLYCERIN
  7. LASIX [Concomitant]
     Active Substance: FUROSEMIDE
  8. XIFAXAN [Concomitant]
     Active Substance: RIFAXIMIN
  9. ALDACTONE [Concomitant]
     Active Substance: SPIRONOLACTONE
  10. BIOTIN [Concomitant]
     Active Substance: BIOTIN
  11. SOFOSBUVIR W/VELPATASVIR [Suspect]
     Active Substance: SOFOSBUVIR\VELPATASVIR
     Indication: CHRONIC HEPATITIS C
     Dosage: 1 DF, QD
     Route: 048
     Dates: start: 20171025, end: 20180116
  12. TRAMADOL. [Concomitant]
     Active Substance: TRAMADOL
  13. RIBAVIRIN. [Suspect]
     Active Substance: RIBAVIRIN
     Indication: CHRONIC HEPATITIS C
     Dosage: 600 MG, QD
     Route: 048
     Dates: start: 20171025, end: 20171123

REACTIONS (1)
  - Hepatic cancer metastatic [Not Recovered/Not Resolved]

NARRATIVE: CASE EVENT DATE: 20180612
